FAERS Safety Report 6485126-3 (Version None)
Quarter: 2009Q4

REPORT INFORMATION
  Report Type: 
  Country: None (occurrence: None)
  Receive Date: 20091204
  Receipt Date: 20091120
  Transmission Date: 20100525
  Serious: Yes (Other)
  Sender: FDA-Public Use
  Company Number: 2004-115156-NL

PATIENT
  Age: 37 Year
  Sex: Female

DRUGS (2)
  1. DANAPAROID SODIUM (S-P) (DANAPAROID SODIUM) [Suspect]
     Indication: WHITE CLOT SYNDROME
     Dosage: 3750 IU;BID;SC ; SC
     Route: 058
  2. PHENPROCOUMON [Concomitant]

REACTIONS (6)
  - ANTEPARTUM HAEMORRHAGE [None]
  - CAESAREAN SECTION [None]
  - CARDIAC FAILURE [None]
  - DRUG EXPOSURE DURING PREGNANCY [None]
  - PLACENTAL DISORDER [None]
  - PREMATURE LABOUR [None]
